FAERS Safety Report 24927542 (Version 1)
Quarter: 2025Q1

REPORT INFORMATION
  Report Type: Spontaneous
  Country: FR (occurrence: FR)
  Receive Date: 20250205
  Receipt Date: 20250205
  Transmission Date: 20250409
  Serious: Yes (Hospitalization)
  Sender: MYLAN
  Company Number: FR-MYLANLABS-2025M1009390

PATIENT
  Age: 26 Year
  Sex: Female

DRUGS (2)
  1. ZOLOFT [Suspect]
     Active Substance: SERTRALINE HYDROCHLORIDE
     Indication: Anxiety
     Dosage: 50 MILLIGRAM, PM ( DAILY IN THE EVENING)
     Route: 048
  2. OXAZEPAM [Concomitant]
     Active Substance: OXAZEPAM
     Route: 065

REACTIONS (4)
  - Illusion [Unknown]
  - Feeling drunk [Unknown]
  - Disorientation [Unknown]
  - Fatigue [Unknown]
